FAERS Safety Report 20649791 (Version 4)
Quarter: 2023Q1

REPORT INFORMATION
  Report Type: Spontaneous
  Country: JP (occurrence: JP)
  Receive Date: 20220329
  Receipt Date: 20230310
  Transmission Date: 20230418
  Serious: Yes (Death)
  Sender: FDA-Public Use
  Company Number: JP-JNJFOC-A-CH2018-166886

PATIENT
  Age: 64 Year
  Sex: Male
  Weight: 67.2 kg

DRUGS (16)
  1. UPTRAVI [Suspect]
     Active Substance: SELEXIPAG
     Indication: Pulmonary arterial hypertension
     Dosage: 0.8 MG, QD
     Route: 048
     Dates: start: 20180105
  2. UPTRAVI [Suspect]
     Active Substance: SELEXIPAG
     Dosage: 0.2 MG, BID
     Route: 048
     Dates: start: 20171013, end: 20171026
  3. UPTRAVI [Suspect]
     Active Substance: SELEXIPAG
     Dosage: 1 MG, QD 2 MG (1.0 MG/12 HOURS)
     Route: 048
     Dates: start: 20171208, end: 20180104
  4. UPTRAVI [Suspect]
     Active Substance: SELEXIPAG
     Dosage: 0.4 MG, BID
     Route: 048
     Dates: start: 20171027, end: 20171109
  5. UPTRAVI [Suspect]
     Active Substance: SELEXIPAG
     Dosage: 0.6 MG, BID
     Route: 048
     Dates: start: 20171110, end: 20171123
  6. UPTRAVI [Suspect]
     Active Substance: SELEXIPAG
     Dosage: 0.8 UNK, UNK
     Route: 048
     Dates: start: 20171124, end: 20171207
  7. UPTRAVI [Suspect]
     Active Substance: SELEXIPAG
     Dosage: 3.2 MG (1.6 MG/12HOURS)
     Route: 048
     Dates: start: 20180831
  8. UPTRAVI [Suspect]
     Active Substance: SELEXIPAG
     Route: 048
     Dates: start: 20171011
  9. UPTRAVI [Suspect]
     Active Substance: SELEXIPAG
     Route: 048
  10. UPTRAVI [Suspect]
     Active Substance: SELEXIPAG
     Route: 048
     Dates: start: 20180518, end: 20180621
  11. UPTRAVI [Suspect]
     Active Substance: SELEXIPAG
     Route: 048
     Dates: start: 20180622, end: 20180726
  12. UPTRAVI [Suspect]
     Active Substance: SELEXIPAG
     Route: 048
     Dates: start: 20180727, end: 20180830
  13. OPSUMIT [Suspect]
     Active Substance: MACITENTAN
     Indication: Pulmonary arterial hypertension
     Dosage: 10 MG, QD
     Route: 048
     Dates: start: 20171011
  14. FEBUXOSTAT [Concomitant]
     Active Substance: FEBUXOSTAT
     Indication: Hyperuricaemia
     Dosage: 10 MG, QD
     Dates: start: 20150806
  15. SPRYCEL [Concomitant]
     Active Substance: DASATINIB
     Indication: Chronic myeloid leukaemia
     Dosage: 50 MG, QD
     Dates: start: 20150709
  16. SPIRONOLACTONE [Concomitant]
     Active Substance: SPIRONOLACTONE
     Indication: Oedema
     Dosage: 25 MG, QD
     Dates: start: 20180105

REACTIONS (2)
  - Pulmonary arterial hypertension [Fatal]
  - Face oedema [Recovered/Resolved]

NARRATIVE: CASE EVENT DATE: 20171208
